FAERS Safety Report 6615673-2 (Version None)
Quarter: 2010Q1

REPORT INFORMATION
  Report Type: 
  Country: None (occurrence: None)
  Receive Date: 20100305
  Receipt Date: 20100226
  Transmission Date: 20100710
  Serious: Yes (Death)
  Sender: FDA-Public Use
  Company Number: VE-ROCHE-687668

PATIENT
  Sex: Male
  Weight: 52 kg

DRUGS (4)
  1. FUZEON [Suspect]
     Route: 042
     Dates: start: 20091105, end: 20100101
  2. KIVEXA [Concomitant]
     Route: 048
     Dates: end: 20100101
  3. REYATAZ [Concomitant]
     Route: 048
     Dates: end: 20100101
  4. NORVIR [Concomitant]
     Route: 048
     Dates: end: 20100101

REACTIONS (1)
  - DEATH [None]
